FAERS Safety Report 6804724-8 (Version None)
Quarter: 2010Q2

REPORT INFORMATION
  Report Type: 
  Country: None (occurrence: None)
  Receive Date: 20100628
  Receipt Date: 20070504
  Transmission Date: 20101027
  Serious: No
  Sender: FDA-Public Use
  Company Number: US-PFIZER INC-2007036249

PATIENT
  Sex: Female
  Weight: 65.909 kg

DRUGS (4)
  1. XALATAN [Suspect]
     Indication: GLAUCOMA
     Route: 047
  2. ALPHAGAN [Concomitant]
     Route: 047
  3. TEAR DROP [Concomitant]
     Route: 047
  4. ALL OTHER THERAPEUTIC PRODUCTS [Concomitant]
     Route: 047

REACTIONS (5)
  - EYE PAIN [None]
  - INSTILLATION SITE REACTION [None]
  - INTRAOCULAR PRESSURE INCREASED [None]
  - IRITIS [None]
  - OCULAR HYPERAEMIA [None]
